FAERS Safety Report 8621595-8 (Version None)
Quarter: 2012Q3

REPORT INFORMATION
  Report Type: 
  Country: None (occurrence: None)
  Receive Date: 20120820
  Receipt Date: 20120820
  Transmission Date: 20120928
  Serious: Yes (Hospitalization)
  Sender: FDA-Public Use
  Company Number: None

PATIENT
  Age: 69 Year
  Sex: Female
  Weight: 71.8 kg

DRUGS (6)
  1. POTASSIUM CHLORIDE [Concomitant]
  2. VELCADE [Suspect]
     Indication: MANTLE CELL LYMPHOMA
     Dosage: 1.6 MQ/M2, WEEKLY, IV
     Route: 042
     Dates: start: 20120425, end: 20120815
  3. TEMSIROLIMUS [Suspect]
     Indication: MANTLE CELL LYMPHOMA
     Dosage: 25 MG, WEEKLY, IV
     Route: 042
     Dates: start: 20120425, end: 20120815
  4. HYDRODIURIL [Concomitant]
  5. DIOVAN [Concomitant]
  6. ACYCLOVIR [Concomitant]

REACTIONS (2)
  - PYREXIA [None]
  - INFECTION [None]
